FAERS Safety Report 5006837-2 (Version None)
Quarter: 2006Q2

REPORT INFORMATION
  Report Type: 
  Country: None (occurrence: None)
  Receive Date: 20060516
  Receipt Date: 20060504
  Transmission Date: 20061013
  Serious: Yes (Life-Threatening, Hospitalization)
  Sender: FDA-Public Use
  Company Number: 2006033209

PATIENT
  Age: 50 Year
  Sex: Male
  Weight: 89.1 kg

DRUGS (2)
  1. SUTENT [Suspect]
     Indication: METASTATIC RENAL CELL CARCINOMA
     Dosage: 50 MG (50 MG, 1 IN 1 D), ORAL
     Route: 048
     Dates: start: 20060124, end: 20060404
  2. DIPYRONE TAB [Concomitant]

REACTIONS (6)
  - BUNDLE BRANCH BLOCK RIGHT [None]
  - ELECTROCARDIOGRAM QT CORRECTED INTERVAL SHORTENED [None]
  - ELECTROCARDIOGRAM QT PROLONGED [None]
  - METASTASES TO HEART [None]
  - VENTRICULAR HYPERTROPHY [None]
  - VENTRICULAR TACHYCARDIA [None]
